FAERS Safety Report 5691196-2 (Version None)
Quarter: 2008Q2

REPORT INFORMATION
  Report Type: 
  Country: None (occurrence: None)
  Receive Date: 20080401
  Receipt Date: 20080401
  Transmission Date: 20081010
  Serious: No
  Sender: FDA-Public Use
  Company Number: None

PATIENT
  Sex: Female
  Weight: 118.8424 kg

DRUGS (1)
  1. VERAPAMIL HYDROCHLORIDE SR [Suspect]
     Indication: ANGINA PECTORIS
     Dosage: 240MG QD PO
     Route: 048

REACTIONS (1)
  - CONSTIPATION [None]
